FAERS Safety Report 10873540 (Version 2)
Quarter: 2015Q1

REPORT INFORMATION
  Report Type: Spontaneous
  Country: FR (occurrence: FR)
  Receive Date: 20150227
  Receipt Date: 20150317
  Transmission Date: 20150721
  Serious: Yes (Other)
  Sender: FDA-Public Use
  Company Number: FR-009507513-1502FRA010274

PATIENT
  Age: 50 Year
  Sex: Male

DRUGS (2)
  1. TRUVADA [Concomitant]
     Active Substance: EMTRICITABINE\TENOFOVIR DISOPROXIL FUMARATE
     Indication: HIV INFECTION
     Dosage: TOTAL DAILY DOSE: ONE 200MG/245MG TABLET
     Route: 048
     Dates: start: 20131203
  2. ISENTRESS [Suspect]
     Active Substance: RALTEGRAVIR POTASSIUM
     Indication: HIV INFECTION
     Dosage: ONE TABLET TWICE DAILY; TOTAL DAILY DOSE: TWO TABLETS
     Route: 048
     Dates: start: 20131203, end: 20141027

REACTIONS (1)
  - Weight increased [Recovering/Resolving]

NARRATIVE: CASE EVENT DATE: 20141027
